FAERS Safety Report 13527507 (Version 5)
Quarter: 2017Q3

REPORT INFORMATION
  Report Type: Report from Study
  Country: DE (occurrence: DE)
  Receive Date: 20170509
  Receipt Date: 20170717
  Transmission Date: 20171127
  Serious: Yes (Hospitalization)
  Sender: FDA-Public Use
  Company Number: DE-CELGENEUS-DEU-2017034531

PATIENT
  Age: 48 Year
  Sex: Female

DRUGS (18)
  1. FENISTIL [Concomitant]
     Active Substance: DIMETHINDENE
     Indication: RASH MACULO-PAPULAR
  2. L-THYROXIN [Concomitant]
     Active Substance: LEVOTHYROXINE SODIUM
     Indication: AUTOIMMUNE THYROIDITIS
     Dosage: NOT PROVIDED
     Route: 065
     Dates: start: 20170309
  3. MORPHINE [Concomitant]
     Active Substance: MORPHINE
     Indication: PAIN
     Route: 065
     Dates: start: 20170314
  4. ABRAXANE [Suspect]
     Active Substance: PACLITAXEL
     Indication: BREAST CANCER METASTATIC
     Dosage: 100 MILLIGRAM/SQ. METER
     Route: 041
     Dates: start: 20170104, end: 20170301
  5. BISOPROLOL [Concomitant]
     Active Substance: BISOPROLOL
     Indication: HYPERTENSION
     Dosage: NOT PROVIDED
     Route: 065
  6. AUGMENTAN [Concomitant]
     Active Substance: AMOXICILLIN\CLAVULANATE POTASSIUM
     Indication: ABSCESS JAW
     Route: 065
     Dates: start: 20170227
  7. HALDOL [Concomitant]
     Active Substance: HALOPERIDOL
     Indication: PAIN
     Route: 065
     Dates: start: 20170411
  8. FENISTIL [Concomitant]
     Active Substance: DIMETHINDENE
     Indication: HYPERSENSITIVITY
     Route: 065
     Dates: start: 20170215, end: 20170218
  9. PREDNICARBATE. [Concomitant]
     Active Substance: PREDNICARBATE
     Indication: RASH MACULO-PAPULAR
     Dosage: NOT PROVIDED
     Route: 065
     Dates: start: 20170215
  10. MOVICOL [Concomitant]
     Active Substance: POLYETHYLENE GLYCOL 3350\POTASSIUM CHLORIDE\SODIUM BICARBONATE\SODIUM CHLORIDE
     Indication: CONSTIPATION
     Route: 065
  11. MOVICOL [Concomitant]
     Active Substance: POLYETHYLENE GLYCOL 3350\POTASSIUM CHLORIDE\SODIUM BICARBONATE\SODIUM CHLORIDE
     Indication: CONSTIPATION
  12. DULCOLAX NOS [Concomitant]
     Active Substance: BISACODYL OR DOCUSATE SODIUM
     Indication: CONSTIPATION
     Route: 065
     Dates: start: 20170317, end: 20170328
  13. ATEZOLIZUMAB. [Suspect]
     Active Substance: ATEZOLIZUMAB
     Indication: BREAST CANCER METASTATIC
     Dosage: BLINDED
     Route: 041
     Dates: start: 20170104
  14. L-THYROXIN [Concomitant]
     Active Substance: LEVOTHYROXINE SODIUM
     Route: 065
  15. POLIHEXANIDE [Concomitant]
     Active Substance: POLIHEXANIDE
     Indication: PRURIGO
     Route: 065
     Dates: start: 20170314
  16. CERNEVIT [Concomitant]
     Active Substance: VITAMINS
     Indication: PRODUCT USED FOR UNKNOWN INDICATION
     Route: 065
  17. ABRAXANE [Suspect]
     Active Substance: PACLITAXEL
     Dosage: 100 MILLIGRAM/SQ. METER
     Route: 041
  18. FENISTIL [Concomitant]
     Active Substance: DIMETHINDENE
     Indication: SKIN DISORDER
     Dosage: 4 MILLIGRAM
     Route: 065
     Dates: start: 20170301, end: 20170301

REACTIONS (4)
  - Nausea [Not Recovered/Not Resolved]
  - Mucosal inflammation [Not Recovered/Not Resolved]
  - Hypersensitivity [Recovered/Resolved]
  - Fatigue [Not Recovered/Not Resolved]

NARRATIVE: CASE EVENT DATE: 20170301
